FAERS Safety Report 15237689 (Version 1)
Quarter: 2018Q3

REPORT INFORMATION
  Report Type: Spontaneous
  Country: US (occurrence: US)
  Receive Date: 20180803
  Receipt Date: 20180803
  Transmission Date: 20181010
  Serious: Yes (Other)
  Sender: FDA-Public Use
  Company Number: US-JNJFOC-20180734624

PATIENT
  Sex: Female

DRUGS (1)
  1. XARELTO [Suspect]
     Active Substance: RIVAROXABAN
     Indication: PULMONARY EMBOLISM
     Dosage: ONCE A MORNING
     Route: 048
     Dates: start: 2012

REACTIONS (4)
  - Joint injury [Unknown]
  - Contusion [Not Recovered/Not Resolved]
  - International normalised ratio decreased [Unknown]
  - Fall [Unknown]

NARRATIVE: CASE EVENT DATE: 2012
